FAERS Safety Report 5644336-5 (Version None)
Quarter: 2008Q1

REPORT INFORMATION
  Report Type: 
  Country: None (occurrence: None)
  Receive Date: 20080229
  Receipt Date: 20080219
  Transmission Date: 20080703
  Serious: Yes (Life-Threatening)
  Sender: FDA-Public Use
  Company Number: DE-BRISTOL-MYERS SQUIBB COMPANY-14082879

PATIENT
  Age: 81 Year
  Sex: Male

DRUGS (27)
  1. LOPIRIN [Suspect]
     Indication: HYPERTENSION
     Route: 048
     Dates: start: 20040714
  2. POTASSIUM CHLORIDE [Suspect]
     Indication: VITAMIN SUPPLEMENTATION
     Route: 048
  3. BERODUAL [Suspect]
     Indication: CHRONIC OBSTRUCTIVE PULMONARY DISEASE
     Route: 055
     Dates: start: 20040717
  4. URBASON [Suspect]
     Indication: CHRONIC OBSTRUCTIVE PULMONARY DISEASE
     Dosage: 60MG 16MG 40MG
     Route: 048
     Dates: start: 20040708
  5. NORVASC [Suspect]
     Indication: HYPERTENSION
     Route: 048
     Dates: start: 20040717
  6. ACERCOMP [Suspect]
     Indication: HYPERTENSION
     Route: 048
     Dates: start: 20040717
  7. NEBILET [Suspect]
     Indication: TACHYCARDIA
     Route: 048
     Dates: start: 20040714
  8. PULMICORT [Suspect]
     Indication: CHRONIC OBSTRUCTIVE PULMONARY DISEASE
     Route: 055
     Dates: start: 20040717
  9. PANTOZOL [Suspect]
     Indication: GASTROINTESTINAL DISORDER
     Dosage: 80MG 20MG
     Route: 048
     Dates: start: 20040708
  10. ASPIRIN [Suspect]
     Indication: THROMBOSIS PROPHYLAXIS
     Route: 048
     Dates: start: 20040717
  11. FORADIL [Suspect]
     Indication: CHRONIC OBSTRUCTIVE PULMONARY DISEASE
     Route: 055
  12. TRAMAL [Suspect]
     Indication: PAIN
     Dosage: 1 DOSAGE FORM: 30O
     Route: 048
  13. CLEXANE [Suspect]
     Indication: THROMBOSIS PROPHYLAXIS
     Route: 058
  14. ACETYLCYSTEINE [Suspect]
     Route: 048
  15. PARACODIN BITARTRATE TAB [Suspect]
     Indication: COUGH
     Dosage: 1 DOSAGE FORM: 30O
     Route: 048
  16. TOREM [Suspect]
     Indication: CARDIAC FAILURE
     Route: 048
  17. DICODID [Suspect]
     Indication: CHRONIC OBSTRUCTIVE PULMONARY DISEASE
     Dosage: 1 DOSAGE FORM: 1/2 AMP
     Route: 058
  18. CEFIXORAL [Suspect]
     Indication: CHRONIC OBSTRUCTIVE PULMONARY DISEASE
     Route: 048
  19. ALDACTONE [Suspect]
     Indication: CARDIAC FAILURE
     Route: 048
  20. AMLODIPINE [Suspect]
     Indication: HYPERTENSION
     Route: 048
  21. ATROVENT [Suspect]
     Indication: CHRONIC OBSTRUCTIVE PULMONARY DISEASE
     Route: 055
  22. ALBUTEROL [Suspect]
     Indication: CHRONIC OBSTRUCTIVE PULMONARY DISEASE
  23. TORSEMIDE [Suspect]
     Indication: CARDIAC FAILURE
     Route: 048
  24. SPIRONOLACTONE [Suspect]
     Indication: CARDIAC FAILURE
     Route: 048
  25. LISINOPRIL AND HYDROCHLOROTHIAZIDE [Suspect]
     Indication: HYPERTENSION
     Dosage: 20/12,5
     Route: 048
  26. KALITRANS [Suspect]
     Indication: VITAMIN SUPPLEMENTATION
     Route: 048
  27. CEFTRIAXONE [Suspect]
     Indication: INFECTION
     Dosage: INJLSG
     Route: 042

REACTIONS (2)
  - STEVENS-JOHNSON SYNDROME [None]
  - TOXIC EPIDERMAL NECROLYSIS [None]
